FAERS Safety Report 9420735 (Version 3)
Quarter: 2013Q3

REPORT INFORMATION
  Report Type: Spontaneous
  Country: JP (occurrence: None)
  Receive Date: 20130723
  Receipt Date: 20130809
  Transmission Date: 20140515
  Serious: Yes (Death, Hospitalization)
  Sender: FDA-Public Use
  Company Number: JP-012125

PATIENT
  Age: 86 Year
  Sex: Male
  Weight: 36 kg

DRUGS (2)
  1. GONAX [Suspect]
     Indication: PROSTATE CANCER
     Route: 058
     Dates: start: 20121115, end: 20121115
  2. CASODEX [Concomitant]

REACTIONS (10)
  - Mania [None]
  - Hallucination [None]
  - Incoherent [None]
  - Restlessness [None]
  - Orchidectomy [None]
  - Respiratory failure [None]
  - Pneumonia aspiration [None]
  - Dementia [None]
  - Circadian rhythm sleep disorder [None]
  - Bipolar disorder [None]
